FAERS Safety Report 6111752-7 (Version None)
Quarter: 2009Q1

REPORT INFORMATION
  Report Type: 
  Country: None (occurrence: None)
  Receive Date: 20090311
  Receipt Date: 20090305
  Transmission Date: 20090719
  Serious: Yes (Death)
  Sender: FDA-Public Use
  Company Number: DE-ELI_LILLY_AND_COMPANY-DE200903001230

PATIENT
  Sex: Male

DRUGS (1)
  1. ALIMTA [Suspect]
     Dosage: UNK, UNKNOWN
     Route: 065

REACTIONS (1)
  - CARDIOGENIC SHOCK [None]
